FAERS Safety Report 9213699 (Version 1)
Quarter: 2013Q2

REPORT INFORMATION
  Report Type: Spontaneous
  Country: PT (occurrence: PT)
  Receive Date: 20130405
  Receipt Date: 20130405
  Transmission Date: 20140414
  Serious: Yes (Other)
  Sender: FDA-Public Use
  Company Number: PT-009507513-1303PRT013055

PATIENT
  Age: 40 Year
  Sex: Female

DRUGS (2)
  1. COSOPT [Suspect]
     Indication: GLAUCOMA
     Dosage: UNK, BID
     Route: 061
  2. LATANOPROST [Concomitant]
     Indication: OPEN ANGLE GLAUCOMA

REACTIONS (10)
  - Breast cancer [Unknown]
  - Intraocular pressure increased [Unknown]
  - Hyperaemia [Unknown]
  - Ocular discomfort [Unknown]
  - Surgery [Unknown]
  - Obstruction [Unknown]
  - Visual acuity reduced [Unknown]
  - Glaucoma [Unknown]
  - Trabeculectomy [Unknown]
  - Drug ineffective [Unknown]
